FAERS Safety Report 6889118-1 (Version None)
Quarter: 2010Q3

REPORT INFORMATION
  Report Type: 
  Country: None (occurrence: None)
  Receive Date: 20100730
  Receipt Date: 20080104
  Transmission Date: 20110219
  Serious: No
  Sender: FDA-Public Use
  Company Number: US-PFIZER INC-2007108964

PATIENT
  Sex: Female
  Weight: 68.181 kg

DRUGS (2)
  1. LIPITOR [Suspect]
     Indication: BLOOD CHOLESTEROL INCREASED
     Dates: start: 20071212
  2. CELEXA [Concomitant]
     Indication: DEPRESSION

REACTIONS (2)
  - FLATULENCE [None]
  - PRODUCT QUALITY ISSUE [None]
